FAERS Safety Report 5072975-1 (Version None)
Quarter: 2006Q3

REPORT INFORMATION
  Report Type: 
  Country: None (occurrence: None)
  Receive Date: 20060802
  Receipt Date: 20060723
  Transmission Date: 20061208
  Serious: Yes (Hospitalization)
  Sender: FDA-Public Use
  Company Number: IL-2006-017610

PATIENT
  Age: 48 Year
  Sex: Female
  Weight: 61 kg

DRUGS (3)
  1. BETASERON [Suspect]
     Indication: RELAPSING-REMITTING MULTIPLE SCLEROSIS
     Dosage: SEE IMAGE
     Route: 058
     Dates: start: 20050308, end: 20060624
  2. BETASERON [Suspect]
     Indication: RELAPSING-REMITTING MULTIPLE SCLEROSIS
     Dosage: SEE IMAGE
     Route: 058
     Dates: start: 20060701, end: 20060701
  3. COPAXONE [Suspect]

REACTIONS (2)
  - CHOLECYSTITIS [None]
  - JAUNDICE CHOLESTATIC [None]
